FAERS Safety Report 6131933-6 (Version None)
Quarter: 2009Q1

REPORT INFORMATION
  Report Type: 
  Country: None (occurrence: None)
  Receive Date: 20090325
  Receipt Date: 20090312
  Transmission Date: 20090719
  Serious: Yes (Life-Threatening, Other)
  Sender: FDA-Public Use
  Company Number: GB-PFIZER INC-2008013519

PATIENT

DRUGS (3)
  1. CHAMPIX [Suspect]
     Route: 048
     Dates: start: 20080117, end: 20080129
  2. CILEST [Concomitant]
     Dosage: 1 UNK, 1X/DAY
     Route: 048
     Dates: start: 20070725
  3. TRANEXAMIC ACID [Concomitant]
     Route: 048
     Dates: start: 20071016

REACTIONS (5)
  - ANXIETY [None]
  - BREAST PAIN [None]
  - NIGHTMARE [None]
  - PAIN [None]
  - SUICIDAL IDEATION [None]
